FAERS Safety Report 8295975-7 (Version None)
Quarter: 2012Q2

REPORT INFORMATION
  Report Type: 
  Country: None (occurrence: None)
  Receive Date: 20120418
  Receipt Date: 20120410
  Transmission Date: 20120825
  Serious: Yes (Other)
  Sender: FDA-Public Use
  Company Number: GB-BRISTOL-MYERS SQUIBB COMPANY-16401770

PATIENT
  Age: 55 Year
  Sex: Female
  Weight: 88 kg

DRUGS (2)
  1. YERVOY [Suspect]
     Indication: METASTATIC MALIGNANT MELANOMA
     Dosage: 2 DOSES,LAST GIVEN ON 15FEB12.
     Route: 042
     Dates: start: 20120119, end: 20120215
  2. ENOXAPARIN [Suspect]
     Dates: start: 20111206

REACTIONS (4)
  - DEEP VEIN THROMBOSIS [None]
  - NEOPLASM MALIGNANT [None]
  - CONTUSION [None]
  - HAEMOGLOBIN DECREASED [None]
